FAERS Safety Report 24901425 (Version 1)
Quarter: 2025Q1

REPORT INFORMATION
  Report Type: Spontaneous
  Country: CN (occurrence: CN)
  Receive Date: 20250129
  Receipt Date: 20250129
  Transmission Date: 20250409
  Serious: Yes (Hospitalization, Other)
  Sender: ABBVIE
  Company Number: CN-ABBVIE-6104906

PATIENT
  Age: 56 Year
  Sex: Male

DRUGS (4)
  1. BOTULINUM TOXIN TYPE A [Suspect]
     Active Substance: BOTULINUM TOXIN TYPE A
     Indication: Bruxism
     Route: 065
     Dates: start: 20240422
  2. CARBAMAZEPINE [Suspect]
     Active Substance: CARBAMAZEPINE
     Indication: Bruxism
     Route: 065
     Dates: end: 20240428
  3. DEXAMETHASONE [Concomitant]
     Active Substance: DEXAMETHASONE
     Indication: Rash erythematous
     Route: 061
  4. Immunoglobulin [Concomitant]
     Indication: Immunoglobulin therapy
     Route: 065
     Dates: start: 20240429, end: 20240503

REACTIONS (1)
  - Stevens-Johnson syndrome [Recovering/Resolving]
